FAERS Safety Report 5028261-9 (Version None)
Quarter: 2006Q2

REPORT INFORMATION
  Report Type: 
  Country: None (occurrence: None)
  Receive Date: 20060612
  Receipt Date: 20060601
  Transmission Date: 20061013
  Serious: Yes (Other)
  Sender: FDA-Public Use
  Company Number: CHPA2006US05390

PATIENT
  Age: 58 Year
  Sex: Female
  Weight: 79.4 kg

DRUGS (1)
  1. TRANSDERM SCOP [Suspect]
     Indication: POST PROCEDURAL NAUSEA
     Dosage: 1.5 MG, ONCE/SINGLE , TRANSDERMAL
     Route: 062
     Dates: start: 20060426, end: 20060502

REACTIONS (7)
  - DELAYED RECOVERY FROM ANAESTHESIA [None]
  - DISTURBANCE IN ATTENTION [None]
  - EYE DISORDER [None]
  - INAPPROPRIATE SCHEDULE OF DRUG ADMINISTRATION [None]
  - MYDRIASIS [None]
  - RESPIRATORY ARREST [None]
  - VISUAL DISTURBANCE [None]
